FAERS Safety Report 17031559 (Version 1)
Quarter: 2019Q4

REPORT INFORMATION
  Report Type: Spontaneous
  Country: US (occurrence: US)
  Receive Date: 20191113
  Receipt Date: 20191113
  Transmission Date: 20200122
  Serious: Yes (Other)
  Sender: FDA-Public Use
  Company Number: None

PATIENT
  Age: 75 Year
  Sex: Female
  Weight: 54 kg

DRUGS (5)
  1. AMLODIPINE F5 MG VS 2.5MG [Suspect]
     Active Substance: AMLODIPINE BESYLATE
     Indication: HYPERTENSION
     Dosage: ?          QUANTITY:1 TABLET(S);?
     Route: 048
  2. VITAMIN B12 [Concomitant]
     Active Substance: CYANOCOBALAMIN
  3. NIACIN. [Concomitant]
     Active Substance: NIACIN
  4. MAGNESIUM [Concomitant]
     Active Substance: MAGNESIUM
  5. VIT D [Concomitant]
     Active Substance: VITAMIN D NOS

REACTIONS (4)
  - Product substitution issue [None]
  - Drug intolerance [None]
  - Heart rate increased [None]
  - Product formulation issue [None]

NARRATIVE: CASE EVENT DATE: 20191102
